FAERS Safety Report 4860211-8 (Version None)
Quarter: 2005Q4

REPORT INFORMATION
  Report Type: 
  Country: None (occurrence: None)
  Receive Date: 20051219
  Receipt Date: 20051214
  Transmission Date: 20060501
  Serious: Yes (Hospitalization)
  Sender: FDA-Public Use
  Company Number: 2005PK02451

PATIENT
  Age: 27399 Day
  Sex: Female

DRUGS (1)
  1. GEFITINIB [Suspect]
     Indication: NON-SMALL CELL LUNG CANCER
     Route: 048
     Dates: start: 20040907

REACTIONS (2)
  - PNEUMATOSIS INTESTINALIS [None]
  - PNEUMOPERITONEUM [None]
